FAERS Safety Report 8538824-1 (Version None)
Quarter: 2012Q3

REPORT INFORMATION
  Report Type: 
  Country: None (occurrence: None)
  Receive Date: 20120726
  Receipt Date: 20120716
  Transmission Date: 20120928
  Serious: Yes (Hospitalization)
  Sender: FDA-Public Use
  Company Number: US-BAYER-2012-072653

PATIENT
  Age: 25 Year
  Sex: Female
  Weight: 81.2 kg

DRUGS (23)
  1. MAXALT [Concomitant]
     Dosage: 10 MG, UNK
     Route: 048
     Dates: start: 20100808
  2. BACTRIM [Concomitant]
     Dosage: UNK
     Route: 048
     Dates: start: 20100908
  3. YASMIN [Suspect]
  4. TERBUTALINE [Concomitant]
     Dosage: 0.25 MG / 0.25 ML
     Route: 058
     Dates: start: 20100718
  5. MAGNESIUM SULFATE [Concomitant]
     Dosage: 40 GM / 1000 ML4 GM LOADING DOSE THEN 2 GM [PER] HOUR
     Route: 042
     Dates: start: 20100719
  6. ASCORBIC ACID [Concomitant]
     Dosage: 500 MG, UNK
     Route: 048
     Dates: start: 20100724
  7. INDERAL [Concomitant]
     Indication: MIGRAINE PROPHYLAXIS
     Dosage: 10 MG, BID
     Route: 048
     Dates: start: 20100326
  8. AMBIEN [Concomitant]
     Dosage: 10 MG, UNK
     Route: 048
     Dates: start: 20100719
  9. AMITRIPTYLINE HYDROCHLORIDE [Concomitant]
     Dosage: 25 MG, UNK
     Route: 048
     Dates: start: 20100908
  10. BETAMETHASONE [Concomitant]
     Dosage: 12 MG, UNK
     Route: 030
     Dates: start: 20100719
  11. DOCUSATE SODIUM [Concomitant]
     Dosage: 100 MG, UNK
     Route: 048
     Dates: start: 20100724
  12. AMPICILLIN [Concomitant]
     Dosage: 2 GM
     Route: 042
     Dates: start: 20100719
  13. FERROUS SULFATE TAB [Concomitant]
     Dosage: 325 MG, UNK
     Route: 048
     Dates: start: 20100724
  14. NORTRIPTYLINE HCL [Concomitant]
     Dosage: 10 MG, UNK
     Route: 048
     Dates: start: 20101001
  15. NAPROXEN [Concomitant]
     Dosage: 500 MG, BID
     Route: 048
     Dates: start: 20100908
  16. YAZ [Suspect]
  17. MULTI-VITAMINS [Concomitant]
     Dosage: 1 TABLET DAILY
     Route: 048
  18. IBUPROFEN [Concomitant]
     Dosage: 600 MG, UNK
     Route: 048
     Dates: start: 20100724
  19. LORTAB [Concomitant]
     Indication: MIGRAINE PROPHYLAXIS
     Dosage: 5 MG BID PRN ( TWO TIMES DAILY AS NEEDED)
     Route: 048
     Dates: start: 20100724
  20. DROSPIRENONE AND ETHINYL ESTRADIOL [Suspect]
  21. TOPIRAMATE [Concomitant]
     Dosage: 25 MG, UNK
     Route: 048
     Dates: start: 20100808, end: 20100908
  22. SUMATRIPTAN [Concomitant]
     Dosage: 100 MG, UNK
     Route: 048
     Dates: start: 20100908
  23. ZOLOFT [Concomitant]
     Indication: DEPRESSION
     Dosage: 50 MG,DAILY
     Route: 048
     Dates: start: 20100803

REACTIONS (1)
  - PULMONARY EMBOLISM [None]
